FAERS Safety Report 18663490 (Version 5)
Quarter: 2021Q1

REPORT INFORMATION
  Report Type: Report from Study
  Country: CN (occurrence: CN)
  Receive Date: 20201224
  Receipt Date: 20210208
  Transmission Date: 20210419
  Serious: Yes (Hospitalization)
  Sender: FDA-Public Use
  Company Number: CN-TAKEDA-2020TUS059871

PATIENT
  Age: 61 Year
  Sex: Male
  Weight: 67 kg

DRUGS (12)
  1. DEXAMETHASONE ACETATE [Suspect]
     Active Substance: DEXAMETHASONE ACETATE
     Indication: PRODUCT USED FOR UNKNOWN INDICATION
     Dosage: 20 MILLIGRAM
     Route: 048
     Dates: start: 20200707, end: 20200913
  2. LENALIDOMIDE [Suspect]
     Active Substance: LENALIDOMIDE
     Indication: PRODUCT USED FOR UNKNOWN INDICATION
     Dosage: 25 MILLIGRAM, QOD
     Route: 048
     Dates: start: 20200707, end: 20201113
  3. CALCIUM CARBONATE WITH D3 [Concomitant]
     Active Substance: CALCIUM CARBONATE\CHOLECALCIFEROL
     Dosage: 600 MILLIGRAM
     Route: 048
     Dates: start: 2018, end: 202011
  4. ACARBOSE. [Concomitant]
     Active Substance: ACARBOSE
     Dosage: 100 MILLIGRAM, TID
     Route: 048
     Dates: start: 2017
  5. METFORMIN HYDROCHLORIDE. [Concomitant]
     Active Substance: METFORMIN HYDROCHLORIDE
     Dosage: 0.5 MILLIGRAM, TID
     Route: 048
     Dates: start: 2015
  6. CALCITRIOL. [Concomitant]
     Active Substance: CALCITRIOL
     Dosage: 0.25 MICROGRAM
     Route: 048
     Dates: start: 2018
  7. DEXAMETHASONE ACETATE [Suspect]
     Active Substance: DEXAMETHASONE ACETATE
     Dosage: 15 MILLIGRAM
     Route: 048
     Dates: start: 20200914, end: 202010
  8. IXAZOMIB [Suspect]
     Active Substance: IXAZOMIB
     Indication: PRODUCT USED FOR UNKNOWN INDICATION
     Dosage: 4 MILLIGRAM, 1/WEEK
     Route: 048
     Dates: start: 20200707, end: 202010
  9. NORCANTHARIDIN [Concomitant]
     Dosage: 10 MILLIGRAM, TID
     Route: 048
     Dates: start: 20200914, end: 202010
  10. ETOPOSIDE. [Concomitant]
     Active Substance: ETOPOSIDE
     Dosage: 50 MILLIGRAM, QD
     Route: 048
     Dates: start: 20200914
  11. ALENDRONATE SODIUM;COLECALCIFEROL [Concomitant]
     Active Substance: ALENDRONATE SODIUM\CHOLECALCIFEROL
     Dosage: 70 MILLIGRAM
     Route: 048
     Dates: start: 2018
  12. ASPIRINE [Concomitant]
     Active Substance: ASPIRIN
     Indication: PROPHYLAXIS
     Dosage: 0.1 GRAM, QD
     Route: 048
     Dates: start: 2016

REACTIONS (3)
  - Osteomyelitis [Recovering/Resolving]
  - Malignant neoplasm progression [Recovering/Resolving]
  - White blood cell count decreased [Recovered/Resolved]

NARRATIVE: CASE EVENT DATE: 20200928
